FAERS Safety Report 10404164 (Version 1)
Quarter: 2014Q1

REPORT INFORMATION
  Report Type: Spontaneous
  Country: US (occurrence: None)
  Receive Date: 20130916
  Receipt Date: 20130916
  Transmission Date: 20141002
  Serious: Yes (Other)
  Sender: FDA-Public Use
  Company Number: JPI-P-031186

PATIENT
  Age: 19 Year
  Sex: Female

DRUGS (2)
  1. XYREM [Suspect]
     Indication: CATAPLEXY
     Route: 048
     Dates: start: 20130327, end: 201303
  2. METHYLPHENIDATE [Suspect]
     Indication: PRODUCT USED FOR UNKNOWN INDICATION

REACTIONS (2)
  - Depression suicidal [None]
  - Gallbladder disorder [None]
